FAERS Safety Report 24333818 (Version 10)
Quarter: 2025Q2

REPORT INFORMATION
  Report Type: Spontaneous
  Country: US (occurrence: US)
  Receive Date: 20240918
  Receipt Date: 20250511
  Transmission Date: 20250717
  Serious: Yes (Hospitalization, Other)
  Sender: SANOFI AVENTIS
  Company Number: US-SA-2024SA265948

PATIENT
  Age: 48 Year
  Sex: Male

DRUGS (8)
  1. ELOCTATE [Suspect]
     Active Substance: EFMOROCTOCOG ALFA
     Indication: Haemorrhage
     Route: 042
  2. ELOCTATE [Suspect]
     Active Substance: EFMOROCTOCOG ALFA
     Indication: Haemorrhage
     Route: 042
  3. ELOCTATE [Suspect]
     Active Substance: EFMOROCTOCOG ALFA
     Indication: Factor VIII deficiency
     Route: 042
     Dates: start: 202501
  4. ELOCTATE [Suspect]
     Active Substance: EFMOROCTOCOG ALFA
     Indication: Factor VIII deficiency
     Route: 042
     Dates: start: 202501
  5. EMTRICITABINE\TENOFOVIR DISOPROXIL FUMARATE [Concomitant]
     Active Substance: EMTRICITABINE\TENOFOVIR DISOPROXIL FUMARATE
  6. RITONAVIR [Concomitant]
     Active Substance: RITONAVIR
  7. DARUNAVIR [Concomitant]
     Active Substance: DARUNAVIR
     Route: 065
  8. HUMATE-P [Concomitant]
     Active Substance: HUMAN COAGULATION FACTOR VIII/VON WILLEBRAND FACTOR COMPLEX
     Dosage: INFUSE 2400 F8 UNITS (2160-2640) SLOW IV PUSH EVERY 8 (EIGHT) HOURS FOR 14 DAYS
     Route: 042
     Dates: start: 2025

REACTIONS (9)
  - Intervertebral disc protrusion [Unknown]
  - Pain [Unknown]
  - Shoulder operation [Unknown]
  - Haemorrhage [Not Recovered/Not Resolved]
  - Haemorrhage [Recovered/Resolved]
  - Haemorrhage [Unknown]
  - Spontaneous haemorrhage [Unknown]
  - Muscle twitching [Unknown]
  - Dysstasia [Unknown]

NARRATIVE: CASE EVENT DATE: 20240806
